FAERS Safety Report 16344917 (Version 1)
Quarter: 2019Q2

REPORT INFORMATION
  Report Type: Report from Study
  Country: None (occurrence: BE)
  Receive Date: 20190522
  Receipt Date: 20190522
  Transmission Date: 20190711
  Serious: Yes (Hospitalization, Other)
  Sender: FDA-Public Use
  Company Number: BE-ABBVIE-19K-013-2789289-00

PATIENT
  Age: 58 Year
  Sex: Female

DRUGS (3)
  1. HUMIRA [Suspect]
     Active Substance: ADALIMUMAB
     Indication: CROHN^S DISEASE
     Route: 058
     Dates: start: 201901
  2. REMICADE [Suspect]
     Active Substance: INFLIXIMAB
     Indication: PRODUCT USED FOR UNKNOWN INDICATION
     Route: 065
  3. REMICADE [Suspect]
     Active Substance: INFLIXIMAB
     Dosage: DOUBLE DOSE
     Route: 065

REACTIONS (6)
  - Headache [Unknown]
  - Intestinal resection [Recovering/Resolving]
  - Abdominal pain [Unknown]
  - Nausea [Unknown]
  - Weight decreased [Recovering/Resolving]
  - Pruritus allergic [Recovered/Resolved]

NARRATIVE: CASE EVENT DATE: 2019
